FAERS Safety Report 25747312 (Version 1)
Quarter: 2025Q3

REPORT INFORMATION
  Report Type: Spontaneous
  Country: US (occurrence: US)
  Receive Date: 20250901
  Receipt Date: 20250901
  Transmission Date: 20251020
  Serious: No
  Sender: SANOFI AVENTIS
  Company Number: US-SA-2025SA259438

PATIENT
  Age: 73 Year
  Sex: Female

DRUGS (2)
  1. DUPIXENT [Suspect]
     Active Substance: DUPILUMAB
     Indication: Dermatitis atopic
     Dosage: 300MG QOW
     Route: 058
  2. DUPIXENT [Suspect]
     Active Substance: DUPILUMAB
     Indication: Dermatitis atopic
     Dosage: 300 MG, QOW
     Route: 058

REACTIONS (12)
  - Fungal infection [Unknown]
  - Ear infection [Unknown]
  - Dermatitis infected [Unknown]
  - Arthropod infestation [Unknown]
  - Tinea pedis [Unknown]
  - Skin laceration [Unknown]
  - Wound haemorrhage [Unknown]
  - Heart rate increased [Unknown]
  - Skin disorder [Unknown]
  - Herpes virus infection [Not Recovered/Not Resolved]
  - Pruritus [Not Recovered/Not Resolved]
  - Injection site pain [Unknown]
